FAERS Safety Report 5256880-3 (Version None)
Quarter: 2007Q1

REPORT INFORMATION
  Report Type: 
  Country: None (occurrence: None)
  Receive Date: 20070306
  Receipt Date: 20070228
  Transmission Date: 20070707
  Serious: Yes (Life-Threatening, Hospitalization, Other)
  Sender: FDA-Public Use
  Company Number: US-MERCK-0702USA00310

PATIENT
  Age: 61 Year
  Sex: Female

DRUGS (9)
  1. JANUVIA [Suspect]
     Indication: DIABETES MELLITUS NON-INSULIN-DEPENDENT
     Route: 048
     Dates: start: 20070110, end: 20070113
  2. METFORMIN [Concomitant]
     Indication: DIABETES MELLITUS NON-INSULIN-DEPENDENT
     Route: 048
     Dates: start: 20060601, end: 20070113
  3. LANTUS [Concomitant]
     Indication: DIABETES MELLITUS NON-INSULIN-DEPENDENT
     Route: 058
     Dates: start: 20060601, end: 20070110
  4. VERAPAMIL EXTENDED-RELEASE [Concomitant]
     Route: 048
  5. WARFARIN [Concomitant]
     Indication: DEEP VEIN THROMBOSIS
     Route: 065
     Dates: end: 20070101
  6. ASPIRIN [Concomitant]
     Route: 048
  7. BUPROPION HYDROCHLORIDE [Concomitant]
     Route: 065
  8. DOCUSATE SODIUM [Concomitant]
     Route: 065
  9. OXYCODONE [Concomitant]
     Indication: PAIN
     Route: 065

REACTIONS (4)
  - DIABETIC KETOACIDOSIS [None]
  - HYPERLIPIDAEMIA [None]
  - HYPERTENSION [None]
  - PLEURAL EFFUSION [None]
